FAERS Safety Report 7314533-1 (Version None)
Quarter: 2011Q1

REPORT INFORMATION
  Report Type: 
  Country: None (occurrence: None)
  Receive Date: 20110225
  Receipt Date: 20101108
  Transmission Date: 20110831
  Serious: No
  Sender: FDA-Public Use
  Company Number: US-MYLANLABS-2010S1017554

PATIENT
  Age: 25 Year
  Sex: Female
  Weight: 58.97 kg

DRUGS (4)
  1. AMNESTEEM [Suspect]
     Indication: ACNE
     Route: 048
     Dates: start: 20100501, end: 20100901
  2. BACTRIM [Concomitant]
     Indication: ACNE
     Route: 048
  3. JUNEL FE [Concomitant]
     Indication: CONTRACEPTION
     Route: 048
  4. AMNESTEEM [Suspect]
     Route: 048
     Dates: start: 20100501, end: 20100901

REACTIONS (4)
  - HEADACHE [None]
  - OROPHARYNGEAL PAIN [None]
  - NAUSEA [None]
  - VOMITING [None]
